FAERS Safety Report 5579117-4 (Version None)
Quarter: 2008Q1

REPORT INFORMATION
  Report Type: 
  Country: None (occurrence: None)
  Receive Date: 20080102
  Receipt Date: 20071221
  Transmission Date: 20080703
  Serious: Yes (Other)
  Sender: FDA-Public Use
  Company Number: PHEH2007US16101

PATIENT
  Age: 38 Year
  Sex: Female
  Weight: 61.224 kg

DRUGS (4)
  1. MIOCHOL-E [Suspect]
     Dates: start: 20071212
  2. REMIFENTANIL [Concomitant]
  3. VERSED [Concomitant]
  4. DIAMOX [Concomitant]

REACTIONS (4)
  - DYSPNOEA [None]
  - GASTROINTESTINAL DISORDER [None]
  - MUSCULAR WEAKNESS [None]
  - NAUSEA [None]
